FAERS Safety Report 4813149-6 (Version None)
Quarter: 2005Q4

REPORT INFORMATION
  Report Type: 
  Country: None (occurrence: None)
  Receive Date: 20051028
  Receipt Date: 20050906
  Transmission Date: 20060501
  Serious: Yes (Death)
  Sender: FDA-Public Use
  Company Number: JP-SANOFI-SYNTHELABO-F01200501801

PATIENT
  Sex: Male
  Weight: 72 kg

DRUGS (4)
  1. OXALIPLATIN [Suspect]
     Indication: COLON CANCER
     Dosage: 150 MG/BODY=82 MG/M2
     Route: 042
     Dates: start: 20050728, end: 20050728
  2. CALCIUM LEVOFOLINATE [Suspect]
     Indication: COLON CANCER
     Dosage: 350 MG/BODY=191.3 MG/M2
     Route: 042
     Dates: start: 20050728, end: 20050728
  3. FLUOROURACIL [Suspect]
     Indication: COLON CANCER
     Dosage: 700 MG/BODY=382.5 MG/M2 IN BOLUS
     Route: 040
     Dates: start: 20050728, end: 20050728
  4. FLUOROURACIL [Suspect]
     Dosage: 4250 MG/BODY=2322.4 MG/M2 AS CONTINUOUS INFUSION
     Route: 042
     Dates: start: 20050728, end: 20050728

REACTIONS (4)
  - DYSPNOEA [None]
  - HEPATIC FUNCTION ABNORMAL [None]
  - RENAL IMPAIRMENT [None]
  - SHOCK [None]
